FAERS Safety Report 24903031 (Version 1)
Quarter: 2025Q1

REPORT INFORMATION
  Report Type: Spontaneous
  Country: GB (occurrence: GB)
  Receive Date: 20250130
  Receipt Date: 20250130
  Transmission Date: 20250409
  Serious: Yes (Other)
  Sender: TAKEDA
  Company Number: GB-MHRA-TPP15701994C10525315YC1737728602106

PATIENT
  Age: 30 Year
  Sex: Female

DRUGS (1)
  1. LISDEXAMFETAMINE DIMESYLATE [Suspect]
     Active Substance: LISDEXAMFETAMINE DIMESYLATE
     Indication: Ill-defined disorder

REACTIONS (2)
  - Dysphagia [Unknown]
  - Swollen tongue [Recovered/Resolved]
